FAERS Safety Report 13094146 (Version 3)
Quarter: 2017Q2

REPORT INFORMATION
  Report Type: Spontaneous
  Country: US (occurrence: US)
  Receive Date: 20170106
  Receipt Date: 20170612
  Transmission Date: 20170830
  Serious: Yes (Other)
  Sender: FDA-Public Use
  Company Number: US-BAYER-2017-002938

PATIENT
  Age: 11 Year
  Sex: Female

DRUGS (4)
  1. HUMIRA [Suspect]
     Active Substance: ADALIMUMAB
     Indication: CROHN^S DISEASE
     Dosage: 40 MG, UNK
     Route: 058
     Dates: start: 20160902, end: 20160902
  2. HUMIRA [Suspect]
     Active Substance: ADALIMUMAB
     Indication: CROHN^S DISEASE
     Dosage: 80 MG, UNK
     Route: 058
     Dates: start: 20160916, end: 20160916
  3. CIPRO [Suspect]
     Active Substance: CIPROFLOXACIN HYDROCHLORIDE
     Indication: CROHN^S DISEASE
     Dosage: 250 MG, BID
     Route: 048
  4. HUMIRA [Suspect]
     Active Substance: ADALIMUMAB
     Indication: CROHN^S DISEASE
     Dosage: 40 MG, Q2WK
     Route: 058
     Dates: start: 20160930

REACTIONS (26)
  - Epistaxis [Recovered/Resolved]
  - Eczema [Unknown]
  - Fatigue [Not Recovered/Not Resolved]
  - Hypersensitivity [Unknown]
  - Haematochezia [Not Recovered/Not Resolved]
  - Nasal congestion [Unknown]
  - Diarrhoea [Recovered/Resolved]
  - Viral upper respiratory tract infection [Unknown]
  - Injection site erythema [Unknown]
  - Injection site swelling [Unknown]
  - Injection site pain [Unknown]
  - Proctalgia [Recovering/Resolving]
  - Fear [Unknown]
  - Pre-existing condition improved [Recovering/Resolving]
  - Abdominal pain upper [Recovering/Resolving]
  - Injection site erythema [None]
  - Hyperhidrosis [Unknown]
  - Initial insomnia [Unknown]
  - Rectal stenosis [Unknown]
  - Loss of personal independence in daily activities [Unknown]
  - Frequent bowel movements [Unknown]
  - Decreased appetite [Unknown]
  - Insomnia [Unknown]
  - Mood altered [Unknown]
  - Mood altered [Unknown]
  - Nausea [Unknown]

NARRATIVE: CASE EVENT DATE: 2016
